FAERS Safety Report 7373846-8 (Version None)
Quarter: 2011Q1

REPORT INFORMATION
  Report Type: 
  Country: None (occurrence: None)
  Receive Date: 20110325
  Receipt Date: 20110321
  Transmission Date: 20110831
  Serious: No
  Sender: FDA-Public Use
  Company Number: US-PFIZER INC-2010069926

PATIENT
  Sex: Female

DRUGS (2)
  1. LACTOSE [Concomitant]
     Indication: LACTOSE INTOLERANCE
     Dosage: UNK
  2. CHANTIX [Suspect]
     Indication: SMOKING CESSATION THERAPY
     Dosage: 0.5 MG, 1X/DAY
     Dates: start: 20100528

REACTIONS (3)
  - FLATULENCE [None]
  - ABDOMINAL PAIN [None]
  - DIARRHOEA [None]
